FAERS Safety Report 25634132 (Version 2)
Quarter: 2025Q3

REPORT INFORMATION
  Report Type: Report from Study
  Country: CA (occurrence: CA)
  Receive Date: 20250801
  Receipt Date: 20250807
  Transmission Date: 20251021
  Serious: Yes (Other)
  Sender: NOVARTIS
  Company Number: CA-002147023-NVSC2025CA103490

PATIENT
  Age: 41 Year
  Sex: Female

DRUGS (2)
  1. COSENTYX [Suspect]
     Active Substance: SECUKINUMAB
     Indication: Ankylosing spondylitis
     Dosage: 150 MG, QMO
     Route: 058
     Dates: start: 20240119, end: 20240429
  2. COSENTYX [Suspect]
     Active Substance: SECUKINUMAB
     Dosage: 150 MG, QMO
     Route: 058
     Dates: start: 20250623

REACTIONS (27)
  - Autoimmune thyroiditis [Recovering/Resolving]
  - Injection site bruising [Recovering/Resolving]
  - Hypothyroidism [Unknown]
  - Blood test abnormal [Unknown]
  - Musculoskeletal stiffness [Unknown]
  - Palpitations [Unknown]
  - Pain [Unknown]
  - Brain fog [Unknown]
  - Pain in jaw [Unknown]
  - Fatigue [Unknown]
  - Contusion [Unknown]
  - Hypersensitivity [Unknown]
  - Inflammation [Not Recovered/Not Resolved]
  - Dehydration [Unknown]
  - Muscle twitching [Unknown]
  - Pharyngeal swelling [Unknown]
  - Tinnitus [Unknown]
  - Ear pain [Unknown]
  - Throat irritation [Unknown]
  - Paranasal sinus hyposecretion [Unknown]
  - Psoriasis [Recovering/Resolving]
  - Joint stiffness [Recovering/Resolving]
  - Premenstrual syndrome [Not Recovered/Not Resolved]
  - Ill-defined disorder [Unknown]
  - Chest pain [Recovering/Resolving]
  - Dyspnoea [Recovering/Resolving]
  - Viral infection [Unknown]

NARRATIVE: CASE EVENT DATE: 20250601
